FAERS Safety Report 6807297-9 (Version None)
Quarter: 2010Q2

REPORT INFORMATION
  Report Type: 
  Country: None (occurrence: None)
  Receive Date: 20100629
  Receipt Date: 20080910
  Transmission Date: 20101027
  Serious: No
  Sender: FDA-Public Use
  Company Number: US-PFIZER INC-2008076351

PATIENT
  Age: 84 Year
  Sex: Male
  Weight: 67.13 kg

DRUGS (2)
  1. XANAX [Suspect]
  2. DRAMAMINE [Suspect]
     Indication: DIZZINESS
     Route: 048
     Dates: start: 20080812, end: 20080812

REACTIONS (1)
  - SOMNOLENCE [None]
